FAERS Safety Report 10645673 (Version 6)
Quarter: 2016Q4

REPORT INFORMATION
  Report Type: Spontaneous
  Country: US (occurrence: US)
  Receive Date: 20141211
  Receipt Date: 20161122
  Transmission Date: 20170206
  Serious: Yes (Hospitalization, Disabling, Other)
  Sender: FDA-Public Use
  Company Number: US-009507513-1110USA03474

PATIENT
  Sex: Male
  Weight: 89.8 kg

DRUGS (3)
  1. FINASTERIDE. [Suspect]
     Active Substance: FINASTERIDE
     Indication: ALOPECIA
     Dosage: 5 MG, DAILY
     Route: 048
     Dates: start: 2009, end: 20110124
  2. PROSCAR [Suspect]
     Active Substance: FINASTERIDE
     Dosage: 1/4 TAB/1.25 MG DAILY
     Route: 048
  3. PROPECIA [Suspect]
     Active Substance: FINASTERIDE
     Indication: ALOPECIA
     Dosage: 1 MG, DAILY
     Route: 048
     Dates: start: 20021003, end: 20110127

REACTIONS (25)
  - Epidural anaesthesia [Unknown]
  - Sperm concentration decreased [Unknown]
  - Abdominal pain [Unknown]
  - Hyperlipidaemia [Unknown]
  - Ejaculation disorder [Unknown]
  - Intervertebral disc operation [Unknown]
  - Diarrhoea [Unknown]
  - Dermal cyst [Unknown]
  - Infertility male [Unknown]
  - Intervertebral disc protrusion [Unknown]
  - Anxiety [Unknown]
  - Drug administration error [Unknown]
  - Sexual dysfunction [Unknown]
  - Libido decreased [Unknown]
  - Constipation [Recovering/Resolving]
  - Bacterial infection [Unknown]
  - Depression [Unknown]
  - Cognitive disorder [Unknown]
  - Tonsillectomy [Unknown]
  - Erectile dysfunction [Unknown]
  - Ejaculation failure [Unknown]
  - Intervertebral disc protrusion [Not Recovered/Not Resolved]
  - Intervertebral disc disorder [Unknown]
  - Wrong technique in product usage process [Unknown]
  - Ligament sprain [Unknown]

NARRATIVE: CASE EVENT DATE: 200412
